FAERS Safety Report 5085659-0 (Version None)
Quarter: 2006Q3

REPORT INFORMATION
  Report Type: 
  Country: None (occurrence: None)
  Receive Date: 20060822
  Receipt Date: 20050725
  Transmission Date: 20061208
  Serious: Yes (Life-Threatening, Hospitalization, Disabling)
  Sender: FDA-Public Use
  Company Number: CZ-ROCHE-411791

PATIENT
  Age: 21 Year
  Sex: Female
  Weight: 68 kg

DRUGS (4)
  1. PEG-INTERFERON A-2A (RO 25-8310) [Suspect]
     Dosage: FORMULATION: SYRINGE
     Route: 058
     Dates: start: 20040930, end: 20050526
  2. RIBAVIRIN [Suspect]
     Route: 048
     Dates: start: 20040930, end: 20050602
  3. LEVOTHYROXINE SODIUM [Concomitant]
     Dates: start: 20040527
  4. DIANE [Concomitant]
     Dates: start: 20030615

REACTIONS (11)
  - ANAEMIA [None]
  - ASCITES [None]
  - AUTOIMMUNE THYROIDITIS [None]
  - CARDIAC TAMPONADE [None]
  - DYSPNOEA [None]
  - NEUTROPENIA [None]
  - OEDEMA PERIPHERAL [None]
  - PERICARDIAL EFFUSION [None]
  - PLEURAL EFFUSION [None]
  - PLEURISY [None]
  - POLYSEROSITIS [None]
